FAERS Safety Report 15241662 (Version 3)
Quarter: 2019Q4

REPORT INFORMATION
  Report Type: Spontaneous
  Country: FR (occurrence: FR)
  Receive Date: 20180805
  Receipt Date: 20191219
  Transmission Date: 20200122
  Serious: Yes (Hospitalization, Other)
  Sender: FDA-Public Use
  Company Number: PHHY2018FR066036

PATIENT
  Age: 54 Year
  Sex: Female

DRUGS (3)
  1. VALSARTAN + HIDROCLOROTIAZIDA SANDOZ [Suspect]
     Active Substance: HYDROCHLOROTHIAZIDE\VALSARTAN
     Indication: HYPONATRAEMIA
     Dosage: UNK UNK, QD
     Route: 065
     Dates: start: 20170831, end: 20171124
  2. FUSIDINE [Concomitant]
     Indication: PRODUCT USED FOR UNKNOWN INDICATION
     Route: 065
  3. VALSARTAN + HIDROCLOROTIAZIDA SANDOZ [Suspect]
     Active Substance: HYDROCHLOROTHIAZIDE\VALSARTAN
     Indication: PRODUCT USED FOR UNKNOWN INDICATION
     Dosage: UNK
     Route: 065
     Dates: start: 2007

REACTIONS (20)
  - Communication disorder [Unknown]
  - Blood sodium decreased [Unknown]
  - Concomitant disease aggravated [Unknown]
  - Fatigue [Unknown]
  - Asthenia [Unknown]
  - Neurodegenerative disorder [Unknown]
  - Dyskinesia [Unknown]
  - Quadriparesis [Unknown]
  - Arrhythmia [Unknown]
  - Pyelonephritis [Unknown]
  - Acute disseminated encephalomyelitis [Unknown]
  - Chills [Unknown]
  - Vertigo [Unknown]
  - Pyrexia [Unknown]
  - Vomiting [Unknown]
  - Visual impairment [Unknown]
  - Osmotic demyelination syndrome [Unknown]
  - Lung disorder [Unknown]
  - Blood potassium decreased [Unknown]
  - Demyelination [Unknown]

NARRATIVE: CASE EVENT DATE: 201710
